FAERS Safety Report 4790234-9 (Version None)
Quarter: 2005Q3

REPORT INFORMATION
  Report Type: 
  Country: None (occurrence: None)
  Receive Date: 20050914
  Receipt Date: 20041115
  Transmission Date: 20060218
  Serious: Yes (Death, Hospitalization)
  Sender: FDA-Public Use
  Company Number: 062-20785-04110421

PATIENT
  Age: 52 Year
  Sex: Male

DRUGS (5)
  1. THALIDOMIDE  - PHARMION (THALIDOMIDE) (50 MILLIGRAM, CAPSULES) [Suspect]
     Indication: HEPATIC NEOPLASM MALIGNANT
     Dosage: 200 MG, DAILY, ORAL
     Route: 048
     Dates: start: 20041027, end: 20040101
  2. LASIX [Concomitant]
  3. HYDROMED IN (ETACRYNIC ACID) [Concomitant]
  4. TRANSTEC ITS (BUPRENORPHINE) [Concomitant]
  5. MORPHINE [Concomitant]

REACTIONS (7)
  - ANURIA [None]
  - ASCITES [None]
  - DEATH [None]
  - DISEASE PROGRESSION [None]
  - HEPATIC FAILURE [None]
  - HEPATORENAL SYNDROME [None]
  - RENAL FAILURE ACUTE [None]
